FAERS Safety Report 7042998-1 (Version None)
Quarter: 2010Q3

REPORT INFORMATION
  Report Type: 
  Country: None (occurrence: None)
  Receive Date: 20100929
  Receipt Date: 20100803
  Transmission Date: 20110219
  Serious: No
  Sender: FDA-Public Use
  Company Number: US-WYE-H16752910

PATIENT
  Sex: Female

DRUGS (4)
  1. PRISTIQ [Suspect]
     Indication: DEPRESSION
     Dosage: 50 MG 1X PER 1 DAY, ORAL
     Route: 048
     Dates: start: 20100101, end: 20100731
  2. AVAPRO [Suspect]
     Indication: HYPERTENSION
     Dates: start: 20100701
  3. LISINOPRIL AND HYDROCHLOROTHIAZIDE [Suspect]
     Indication: HYPERTENSION
     Dates: start: 20090201, end: 20100701
  4. WELLBUTRIN [Suspect]
     Indication: DEPRESSION
     Dates: end: 20100101

REACTIONS (4)
  - COUGH [None]
  - DIZZINESS [None]
  - DRUG WITHDRAWAL SYNDROME [None]
  - RASH [None]
